FAERS Safety Report 9319626 (Version 1)
Quarter: 2012Q4

REPORT INFORMATION
  Report Type: Spontaneous
  Country: IT (occurrence: None)
  Receive Date: 20121128
  Receipt Date: 20121128
  Transmission Date: 20130627
  Serious: Yes (Hospitalization)
  Sender: FDA-Public Use
  Company Number: 2012IT0375

PATIENT
  Age: 5 Year
  Sex: Male

DRUGS (1)
  1. ORFADIN (NITISINONE) [Suspect]
     Indication: TYROSINAEMIA TYPE I
     Dates: start: 20081119

REACTIONS (3)
  - Hepatocellular carcinoma [None]
  - Liver transplant [None]
  - Hepatic cirrhosis [None]
